FAERS Safety Report 5837024-3 (Version None)
Quarter: 2008Q3

REPORT INFORMATION
  Report Type: 
  Country: None (occurrence: None)
  Receive Date: 20080807
  Receipt Date: 20070717
  Transmission Date: 20090109
  Serious: No
  Sender: FDA-Public Use
  Company Number: US-BRISTOL-MYERS SQUIBB COMPANY-13848882

PATIENT
  Age: 70 Year
  Sex: Male

DRUGS (9)
  1. GLUCOVANCE [Suspect]
     Route: 048
     Dates: start: 20051101
  2. TERAZOSIN HCL [Concomitant]
  3. NORVASC [Concomitant]
  4. LASIX [Concomitant]
  5. AVALIDE [Concomitant]
  6. TOPROL-XL [Concomitant]
  7. ACTOS [Concomitant]
  8. CRESTOR [Concomitant]
  9. ALLEGRA-D [Concomitant]

REACTIONS (2)
  - BLOOD GLUCOSE INCREASED [None]
  - MEDICATION RESIDUE [None]
